FAERS Safety Report 13840170 (Version 1)
Quarter: 2017Q3

REPORT INFORMATION
  Report Type: Spontaneous
  Country: US (occurrence: US)
  Receive Date: 20170807
  Receipt Date: 20170807
  Transmission Date: 20171127
  Serious: Yes (Hospitalization, Other)
  Sender: FDA-Public Use
  Company Number: US-GLAXOSMITHKLINE-US2017121666

PATIENT
  Age: 53 Year
  Sex: Male

DRUGS (1)
  1. FLOLAN [Suspect]
     Active Substance: EPOPROSTENOL SODIUM
     Indication: PULMONARY HYPERTENSION
     Dosage: UNK
     Dates: start: 200312, end: 200407

REACTIONS (3)
  - Oedema peripheral [Unknown]
  - Liver transplant [Unknown]
  - Ascites [Unknown]

NARRATIVE: CASE EVENT DATE: 20040216
